FAERS Safety Report 18548763 (Version 2)
Quarter: 2025Q2

REPORT INFORMATION
  Report Type: Spontaneous
  Country: IT (occurrence: IT)
  Receive Date: 20201126
  Receipt Date: 20250619
  Transmission Date: 20250717
  Serious: Yes (Other)
  Sender: AUROBINDO
  Company Number: IT-MLMSERVICE-20201112-2581309-1

PATIENT
  Sex: Male

DRUGS (8)
  1. SERTRALINE [Suspect]
     Active Substance: SERTRALINE HYDROCHLORIDE
     Indication: Major depression
     Dosage: 100 MILLIGRAM, ONCE A DAY
     Route: 065
  2. SERTRALINE [Suspect]
     Active Substance: SERTRALINE HYDROCHLORIDE
     Route: 065
  3. PRAMIPEXOLE [Suspect]
     Active Substance: PRAMIPEXOLE
     Indication: Sexual dysfunction
     Dosage: 1 MILLIGRAM, ONCE A DAY
     Route: 065
  4. AMISULPRIDE [Suspect]
     Active Substance: AMISULPRIDE
     Indication: Sexual dysfunction
     Route: 065
  5. ARIPIPRAZOLE [Suspect]
     Active Substance: ARIPIPRAZOLE
     Indication: Sexual dysfunction
     Route: 065
  6. BUPROPION [Suspect]
     Active Substance: BUPROPION
     Indication: Sexual dysfunction
     Dosage: 300 MILLIGRAM, ONCE A DAY
     Route: 065
  7. BUSPIRONE [Suspect]
     Active Substance: BUSPIRONE HYDROCHLORIDE
     Indication: Sexual dysfunction
     Route: 065
  8. TRAZODONE [Suspect]
     Active Substance: TRAZODONE HYDROCHLORIDE
     Indication: Sexual dysfunction
     Route: 065

REACTIONS (12)
  - Emotional disorder [Unknown]
  - Irritability [Unknown]
  - Attention deficit hyperactivity disorder [Unknown]
  - Sexual dysfunction [Recovering/Resolving]
  - Generalised anxiety disorder [Unknown]
  - Drug withdrawal syndrome [Unknown]
  - Toxicity to various agents [Unknown]
  - Persistent depressive disorder [Unknown]
  - Obsessive-compulsive disorder [Unknown]
  - Memory impairment [Unknown]
  - Dissociation [Unknown]
  - Abnormal behaviour [Unknown]
